FAERS Safety Report 9200979 (Version 2)
Quarter: 2013Q2

REPORT INFORMATION
  Report Type: Spontaneous
  Country: US (occurrence: US)
  Receive Date: 20130401
  Receipt Date: 20130423
  Transmission Date: 20140414
  Serious: Yes (Other)
  Sender: FDA-Public Use
  Company Number: US-JNJFOC-20130316009

PATIENT
  Sex: Male
  Weight: 63.5 kg

DRUGS (4)
  1. LISTERINE TOTAL CARE PLUS WHITENING MOUTHWASH [Suspect]
     Indication: DENTAL DISORDER PROPHYLAXIS
     Dosage: HALF A CAPFUL
     Route: 048
     Dates: end: 20130321
  2. SYNTHROID [Concomitant]
     Indication: THYROID DISORDER
     Dosage: FEW YEARS.
     Route: 065
     Dates: start: 2009
  3. CALCIUM [Concomitant]
     Indication: BONE DENSITY DECREASED
     Route: 065
  4. MULTIVITAMINS [Concomitant]
     Route: 065

REACTIONS (3)
  - Application site haemorrhage [Not Recovered/Not Resolved]
  - Gingival pain [Recovering/Resolving]
  - Oral herpes [Not Recovered/Not Resolved]
